FAERS Safety Report 10071040 (Version 2)
Quarter: 2014Q2

REPORT INFORMATION
  Report Type: Spontaneous
  Country: US (occurrence: US)
  Receive Date: 20140410
  Receipt Date: 20140507
  Transmission Date: 20141212
  Serious: Yes (Disabling, Other)
  Sender: FDA-Public Use
  Company Number: US-PFIZER INC-2014098932

PATIENT
  Age: 50 Year
  Sex: Female
  Weight: 68.03 kg

DRUGS (4)
  1. LYRICA [Suspect]
     Indication: NEURALGIA
     Dosage: 25 MG, 2X/DAY
     Route: 048
     Dates: start: 2013
  2. LYRICA [Suspect]
     Dosage: 75 MG, ALTERNATE DAY
     Dates: end: 20140228
  3. LEVOTHYROXINE [Concomitant]
     Dosage: 112 UG, UNK
  4. VITAMIN B12 [Concomitant]
     Dosage: 100 UG, DAILY
     Route: 048

REACTIONS (9)
  - Intentional product misuse [Unknown]
  - Abasia [Unknown]
  - Anger [Unknown]
  - Crying [Unknown]
  - Euphoric mood [Unknown]
  - Insomnia [Unknown]
  - Psychomotor hyperactivity [Unknown]
  - Depression [Unknown]
  - Fibromyalgia [Unknown]
